FAERS Safety Report 16290003 (Version 1)
Quarter: 2019Q2

REPORT INFORMATION
  Report Type: Spontaneous
  Country: US (occurrence: US)
  Receive Date: 20190404
  Receipt Date: 20190404
  Transmission Date: 20190711
  Serious: Yes (Hospitalization)
  Sender: FDA-Public Use
  Company Number: None

PATIENT
  Age: 83 Year
  Sex: Male

DRUGS (1)
  1. ESBRIET [Suspect]
     Active Substance: PIRFENIDONE
     Indication: IDIOPATHIC PULMONARY FIBROSIS
     Dosage: ?          OTHER ROUTE:ORAL W/MEALS?
     Route: 048
     Dates: start: 20190202

REACTIONS (2)
  - Cardiac failure [None]
  - Product dose omission [None]

NARRATIVE: CASE EVENT DATE: 20190303
